FAERS Safety Report 25117551 (Version 1)
Quarter: 2025Q1

REPORT INFORMATION
  Report Type: Spontaneous
  Country: US (occurrence: None)
  Receive Date: 20250324
  Receipt Date: 20250324
  Transmission Date: 20250408
  Serious: No
  Sender: FDA-CTU
  Company Number: None

PATIENT
  Age: 60 Year
  Sex: Female
  Weight: 137.25 kg

DRUGS (5)
  1. DUPIXENT [Suspect]
     Active Substance: DUPILUMAB
     Indication: Dermatitis atopic
     Dosage: 300 MG EVERY  WEEKS SUBCUTANEOUS
     Route: 058
  2. Opzelura 1.5% [Concomitant]
  3. Minoxidil 7%, [Concomitant]
  4. latanoprost 0.1% [Concomitant]
  5. finasteride 0.1% compound [Concomitant]

REACTIONS (4)
  - Conjunctivitis [None]
  - Sinusitis [None]
  - Alopecia [None]
  - Alopecia [None]
